FAERS Safety Report 6600140-2 (Version None)
Quarter: 2010Q1

REPORT INFORMATION
  Report Type: 
  Country: None (occurrence: None)
  Receive Date: 20100224
  Receipt Date: 20100216
  Transmission Date: 20100710
  Serious: Yes (Life-Threatening)
  Sender: FDA-Public Use
  Company Number: B0633865A

PATIENT
  Age: 45 Year
  Sex: Male
  Weight: 80 kg

DRUGS (1)
  1. NIQUITIN [Suspect]
     Indication: SMOKING CESSATION THERAPY
     Route: 062
     Dates: start: 20100205, end: 20100205

REACTIONS (5)
  - ANXIETY [None]
  - COLD SWEAT [None]
  - DYSPNOEA [None]
  - HYPERHIDROSIS [None]
  - RESTLESSNESS [None]
